FAERS Safety Report 9012276 (Version 1)
Quarter: 2012Q4

REPORT INFORMATION
  Report Type: Spontaneous
  Country: US (occurrence: None)
  Receive Date: 20121231
  Receipt Date: 20121231
  Transmission Date: 20130627
  Serious: Yes (Other)
  Sender: FDA-Public Use
  Company Number: 2012AP004334

PATIENT
  Sex: Female

DRUGS (4)
  1. APO-ACYCLOVIR (ACICLOVIR) [Suspect]
     Indication: SHINGLES
     Dosage: 5xD
     Dates: start: 20121113
  2. ACTONEL (RISEDRONATE SODIUM) [Concomitant]
  3. SYNTHYROID (LEVOTHYROXINE SODIUM) [Concomitant]
  4. STATEX  /00036302/ (MORPHINE SULFATE) [Concomitant]

REACTIONS (1)
  - Rectal haemorrhage [None]
